FAERS Safety Report 7806074-X (Version None)
Quarter: 2011Q4

REPORT INFORMATION
  Report Type: 
  Country: None (occurrence: None)
  Receive Date: 20111007
  Receipt Date: 20111007
  Transmission Date: 20120403
  Serious: Yes (Hospitalization)
  Sender: FDA-Public Use
  Company Number: None

PATIENT
  Age: 9 Year
  Sex: Male
  Weight: 49.8957 kg

DRUGS (6)
  1. SINGULAIR [Concomitant]
  2. ALL OTHER THERAPEUTICS (ALL OTHER THERAPEUTIC PRODUCTS) [Concomitant]
  3. CLARITIN [Concomitant]
  4. LISTERINE AGENT COOL BLUE BUBBLE BLAST (ORAL CARE PRODUCTS) LIQUID [Suspect]
     Indication: DENTAL DISORDER PROPHYLAXIS
     Dosage: 10 ML, 1 IN 1 DAY, ORAL
     Route: 048
     Dates: start: 20060901, end: 20061102
  5. HYPERSENSITIVITY [Concomitant]
  6. SYNTHROID [Concomitant]

REACTIONS (3)
  - SINUS DISORDER [None]
  - LUNG INFECTION [None]
  - HYPERSENSITIVITY [None]
